FAERS Safety Report 9031755 (Version 1)
Quarter: 2013Q1

REPORT INFORMATION
  Report Type: Spontaneous
  Country: IT (occurrence: IT)
  Receive Date: 20130124
  Receipt Date: 20130124
  Transmission Date: 20140127
  Serious: Yes (Hospitalization)
  Sender: FDA-Public Use
  Company Number: IT-BRISTOL-MYERS SQUIBB COMPANY-17292921

PATIENT
  Age: 90 Year
  Sex: Male

DRUGS (6)
  1. COUMADIN TABS 5 MG [Suspect]
     Indication: THROMBOSIS PROPHYLAXIS
     Dosage: 1DF:1UNIT
     Route: 048
     Dates: start: 20111103, end: 20121225
  2. CARDIRENE [Suspect]
     Indication: THROMBOSIS PROPHYLAXIS
     Route: 048
     Dates: start: 20111103, end: 20111125
  3. NORVASC [Concomitant]
     Dosage: 5MG TABS
     Route: 048
  4. OMNIC [Concomitant]
     Dosage: 0.4 MG TABS
     Route: 048
  5. OMNIC [Concomitant]
     Route: 048
  6. LASITONE [Concomitant]
     Dosage: 25MG+37MG TABLETS?1DF:1UNIT
     Route: 048

REACTIONS (2)
  - Chest pain [Recovered/Resolved]
  - Haematoma [Recovered/Resolved]
